FAERS Safety Report 11550806 (Version 1)
Quarter: 2015Q3

REPORT INFORMATION
  Report Type: Spontaneous
  Country: US (occurrence: US)
  Receive Date: 20150903
  Receipt Date: 20150903
  Transmission Date: 20151125
  Serious: No
  Sender: FDA-Public Use
  Company Number: US-ELI_LILLY_AND_COMPANY-US201211001686

PATIENT
  Sex: Male

DRUGS (2)
  1. HUMALOG [Suspect]
     Active Substance: INSULIN LISPRO
     Indication: TYPE 2 DIABETES MELLITUS
     Dosage: 25 U, PRN
     Route: 065
     Dates: end: 20121103
  2. HUMALOG [Suspect]
     Active Substance: INSULIN LISPRO
     Dosage: 25 U, PRN
     Route: 065
     Dates: start: 20121104

REACTIONS (4)
  - Drug ineffective [Unknown]
  - Drug dose omission [Recovered/Resolved]
  - Malaise [Unknown]
  - Blood glucose increased [Unknown]
